FAERS Safety Report 5573507-1 (Version None)
Quarter: 2007Q4

REPORT INFORMATION
  Report Type: 
  Country: None (occurrence: None)
  Receive Date: 20071220
  Receipt Date: 20071220
  Transmission Date: 20080405
  Serious: Yes (Hospitalization)
  Sender: FDA-Public Use
  Company Number: None

PATIENT
  Sex: Female
  Weight: 83.46 kg

DRUGS (1)
  1. SUNITINIB [Suspect]
     Indication: TRANSITIONAL CELL CARCINOMA
     Dosage: 50 MG  ONCE DAILY  PO
     Route: 048
     Dates: start: 20071004, end: 20071109

REACTIONS (5)
  - ANAEMIA [None]
  - INTESTINAL PERFORATION [None]
  - POST PROCEDURAL COMPLICATION [None]
  - POSTOPERATIVE ILEUS [None]
  - SMALL INTESTINAL OBSTRUCTION [None]
